FAERS Safety Report 14642005 (Version 1)
Quarter: 2018Q1

REPORT INFORMATION
  Report Type: Spontaneous
  Country: RU (occurrence: RU)
  Receive Date: 20180315
  Receipt Date: 20180315
  Transmission Date: 20180509
  Serious: Yes (Hospitalization)
  Sender: FDA-Public Use
  Company Number: RU-ASTRAZENECA-2018SE31179

PATIENT
  Age: 58 Year
  Sex: Female
  Weight: 80 kg

DRUGS (5)
  1. DIABETON MB [Concomitant]
     Active Substance: GLICLAZIDE
  2. CONCOR [Concomitant]
     Active Substance: BISOPROLOL FUMARATE
  3. FORXIGA [Suspect]
     Active Substance: DAPAGLIFLOZIN
     Indication: TYPE 2 DIABETES MELLITUS
     Route: 048
  4. LORISTA [Concomitant]
     Active Substance: LOSARTAN POTASSIUM
  5. METFORMIN [Concomitant]
     Active Substance: METFORMIN HYDROCHLORIDE

REACTIONS (1)
  - Calculus urinary [Not Recovered/Not Resolved]

NARRATIVE: CASE EVENT DATE: 20180125
